FAERS Safety Report 7056906-0 (Version None)
Quarter: 2010Q4

REPORT INFORMATION
  Report Type: 
  Country: None (occurrence: None)
  Receive Date: 20101022
  Receipt Date: 20101013
  Transmission Date: 20110411
  Serious: Yes (Other)
  Sender: FDA-Public Use
  Company Number: TH-JNJFOC-20101005061

PATIENT
  Age: 36 Year
  Sex: Female
  Weight: 47 kg

DRUGS (3)
  1. TOPIRAMATE [Suspect]
     Indication: MIGRAINE PROPHYLAXIS
     Dosage: THIRD WEEK
     Route: 048
  2. TOPIRAMATE [Suspect]
     Dosage: FIRST TWO WEEKS
     Route: 048
  3. NON STEROIDAL ANTI-INFLAMMATORY DRUGS [Concomitant]
     Indication: MIGRAINE PROPHYLAXIS
     Route: 065

REACTIONS (1)
  - MAJOR DEPRESSION [None]
